FAERS Safety Report 13273204 (Version 1)
Quarter: 2017Q1

REPORT INFORMATION
  Report Type: Spontaneous
  Country: IT (occurrence: IT)
  Receive Date: 20170227
  Receipt Date: 20170227
  Transmission Date: 20170428
  Serious: Yes (Other)
  Sender: FDA-Public Use
  Company Number: IT-TEVA-647635ACC

PATIENT
  Age: 50 Year
  Sex: Female
  Weight: 63 kg

DRUGS (4)
  1. DOXORUBICIN HYDROCHLORIDE. [Suspect]
     Active Substance: DOXORUBICIN HYDROCHLORIDE
     Indication: HODGKIN^S DISEASE NODULAR SCLEROSIS
     Dosage: 40 MG CYCLICAL
     Route: 042
     Dates: start: 20160308, end: 20160308
  2. VINBLASTINA TEVA - 1 MG/ML SOLUZIONE INIETTABILE [Suspect]
     Active Substance: VINBLASTINE SULFATE
     Indication: HODGKIN^S DISEASE NODULAR SCLEROSIS
     Dosage: 9.6 MG CYCLICAL
     Route: 042
     Dates: start: 20160308, end: 20160308
  3. BLEOPRIM - 15 MG POLVERE PER SOLUZIONE INIETTABILE-SANOFI S.P.A. [Suspect]
     Active Substance: BLEOMYCIN SULFATE
     Indication: HODGKIN^S DISEASE
     Dosage: 16 MG CYCLICAL
     Route: 030
     Dates: start: 20160308, end: 20160308
  4. DACARBAZINA MEDAC- 200 MG POLVERE PER SOLUZIONE INIETTABILE O PER INFU [Suspect]
     Active Substance: DACARBAZINE CITRATE
     Indication: HODGKIN^S DISEASE NODULAR SCLEROSIS
     Dosage: 600 MG CYCLICAL
     Route: 042
     Dates: start: 20160308, end: 20160308

REACTIONS (1)
  - Neutropenia [Unknown]

NARRATIVE: CASE EVENT DATE: 20160322
